FAERS Safety Report 6724742-8 (Version None)
Quarter: 2010Q2

REPORT INFORMATION
  Report Type: 
  Country: None (occurrence: None)
  Receive Date: 20100513
  Receipt Date: 20100507
  Transmission Date: 20101027
  Serious: Yes (Hospitalization, Other)
  Sender: FDA-Public Use
  Company Number: JP-ABBOTT-10P-087-0636153-00

PATIENT
  Sex: Male

DRUGS (20)
  1. NORVIR [Suspect]
     Indication: HIV INFECTION
     Route: 048
     Dates: start: 20031015
  2. VIDEX [Suspect]
     Indication: HIV INFECTION
     Route: 048
     Dates: start: 20000129, end: 20000611
  3. VIDEX [Suspect]
     Route: 048
     Dates: start: 20000721, end: 20000913
  4. VIDEX [Suspect]
     Route: 048
     Dates: start: 20010305, end: 20030421
  5. ZERIT [Suspect]
     Indication: HIV INFECTION
     Route: 048
     Dates: start: 20000129, end: 20000611
  6. ZERIT [Suspect]
     Route: 048
     Dates: start: 19950807, end: 19961028
  7. ZERIT [Suspect]
     Route: 048
     Dates: start: 20000721, end: 20001123
  8. ZERIT [Suspect]
     Route: 048
     Dates: start: 20010305, end: 20030421
  9. ZERIT [Suspect]
     Route: 048
     Dates: start: 20031015
  10. REYATAZ [Suspect]
     Indication: HIV INFECTION
     Route: 048
     Dates: start: 20040206, end: 20080304
  11. VIRACEPT [Suspect]
     Indication: HIV INFECTION
     Route: 048
     Dates: start: 19990719, end: 20000611
  12. VIRACEPT [Suspect]
     Dates: start: 19980102, end: 19990719
  13. VIRACEPT [Suspect]
     Dates: start: 19970716, end: 19980112
  14. TRUVADA [Suspect]
     Indication: HIV INFECTION
  15. PREZISTA [Suspect]
     Indication: HIV INFECTION
  16. ISENTRESS [Suspect]
     Indication: HIV INFECTION
  17. LAMIVUDINE [Concomitant]
     Indication: HIV INFECTION
     Route: 048
     Dates: start: 19971020, end: 20000129
  18. LAMIVUDINE [Concomitant]
     Route: 048
     Dates: start: 20031015
  19. CROSS EIGHT M [Concomitant]
     Indication: DRUG USE FOR UNKNOWN INDICATION
     Route: 048
     Dates: start: 19961101
  20. PENTAMIDINE ISETHIONATE [Concomitant]
     Route: 048
     Dates: start: 19961101, end: 20010331

REACTIONS (7)
  - CHOLELITHIASIS [None]
  - DEPRESSION [None]
  - DYSPHORIA [None]
  - HYPERBILIRUBINAEMIA [None]
  - LIVER DISORDER [None]
  - MALAISE [None]
  - PANCREATIC MASS [None]
